FAERS Safety Report 5546067-9 (Version None)
Quarter: 2007Q4

REPORT INFORMATION
  Report Type: 
  Country: None (occurrence: None)
  Receive Date: 20071123
  Receipt Date: 20070116
  Transmission Date: 20080405
  Serious: Yes (Other)
  Sender: FDA-Public Use
  Company Number: 33604

PATIENT
  Sex: Male

DRUGS (2)
  1. LEUCOVORIN CALCIUM [Suspect]
  2. LEUCOVORIN CALCIUM [Suspect]

REACTIONS (1)
  - BURNING SENSATION [None]
